FAERS Safety Report 9420821 (Version 1)
Quarter: 2013Q3

REPORT INFORMATION
  Report Type: Spontaneous
  Country: US (occurrence: US)
  Receive Date: 20130725
  Receipt Date: 20130725
  Transmission Date: 20140515
  Serious: No
  Sender: FDA-Public Use
  Company Number: US-ABBOTT-13P-163-1077311-00

PATIENT
  Age: 45 Year
  Sex: Female
  Weight: 88.98 kg

DRUGS (2)
  1. SYNTHROID [Suspect]
     Indication: HYPOTHYROIDISM
     Route: 048
     Dates: start: 20130410
  2. SYNTHROID [Suspect]
     Indication: HYPOTHYROIDISM
     Route: 048
     Dates: start: 20130410

REACTIONS (6)
  - Fluid retention [Not Recovered/Not Resolved]
  - Urticaria [Unknown]
  - Urticaria [Unknown]
  - Pharyngeal oedema [Not Recovered/Not Resolved]
  - Flushing [Unknown]
  - Throat irritation [Not Recovered/Not Resolved]
